FAERS Safety Report 24770315 (Version 2)
Quarter: 2025Q1

REPORT INFORMATION
  Report Type: Spontaneous
  Country: FR (occurrence: FR)
  Receive Date: 20241224
  Receipt Date: 20250203
  Transmission Date: 20250408
  Serious: Yes (Death)
  Sender: CHIESI
  Company Number: FR-CHIESI-2024CHF08239

PATIENT

DRUGS (1)
  1. CUROSURF [Suspect]
     Active Substance: PORACTANT ALFA
     Indication: Product used for unknown indication
     Route: 007
     Dates: start: 202404

REACTIONS (1)
  - Neonatal pneumothorax [Fatal]

NARRATIVE: CASE EVENT DATE: 20240401
